FAERS Safety Report 15654093 (Version 2)
Quarter: 2018Q4

REPORT INFORMATION
  Report Type: Spontaneous
  Country: HU (occurrence: HU)
  Receive Date: 20181125
  Receipt Date: 20181210
  Transmission Date: 20190205
  Serious: Yes (Hospitalization, Other)
  Sender: FDA-Public Use
  Company Number: HU-AMGEN-HUNSP2018168219

PATIENT
  Age: 42 Year
  Sex: Male

DRUGS (1)
  1. ENBREL [Suspect]
     Active Substance: ETANERCEPT
     Indication: SPONDYLITIS
     Dosage: 50 MG, WEEKLY
     Route: 058
     Dates: start: 20110407, end: 20180802

REACTIONS (12)
  - Pneumonia [Unknown]
  - Musculoskeletal chest pain [Not Recovered/Not Resolved]
  - Herpes zoster [Unknown]
  - Suprapubic pain [Unknown]
  - Nephrolithiasis [Unknown]
  - Respiratory disorder [Unknown]
  - Dizziness [Not Recovered/Not Resolved]
  - Basal cell carcinoma [Recovered/Resolved]
  - Melanocytic naevus [Recovered/Resolved]
  - Back pain [Not Recovered/Not Resolved]
  - Neck pain [Not Recovered/Not Resolved]
  - Traumatic haematoma [Unknown]

NARRATIVE: CASE EVENT DATE: 201601
